FAERS Safety Report 18601241 (Version 1)
Quarter: 2020Q4

REPORT INFORMATION
  Report Type: Spontaneous
  Country: US (occurrence: US)
  Receive Date: 20201210
  Receipt Date: 20201210
  Transmission Date: 20210114
  Serious: Yes (Other)
  Sender: FDA-Public Use
  Company Number: US-AMERICAN REGENT INC-2020002091

PATIENT
  Age: 17 Year
  Sex: Female

DRUGS (7)
  1. VENOFER [Suspect]
     Active Substance: IRON SUCROSE
     Dosage: 300 MILLIGRAM IN 0.9% NACL 150 ML OVER 60 MINUTES
     Route: 042
     Dates: start: 20191223, end: 20191223
  2. VENOFER [Suspect]
     Active Substance: IRON SUCROSE
     Indication: IRON DEFICIENCY ANAEMIA
     Dosage: UNK, FIRST DOSE
     Route: 065
     Dates: start: 20191203, end: 20191203
  3. CYPROHEPTADINE. [Concomitant]
     Active Substance: CYPROHEPTADINE
     Indication: PRODUCT USED FOR UNKNOWN INDICATION
     Dosage: 4 MILLIGRAM
     Route: 048
     Dates: start: 20190726
  4. VENOFER [Suspect]
     Active Substance: IRON SUCROSE
     Dosage: UNK, SECOND DOSE
     Route: 065
     Dates: start: 20191209, end: 20191209
  5. VENOFER [Suspect]
     Active Substance: IRON SUCROSE
     Dosage: 300 MILLIGRAM, SINGLE
     Dates: start: 20191216, end: 20191216
  6. FERROUS SULFATE. [Concomitant]
     Active Substance: FERROUS SULFATE
     Indication: ANAEMIA
     Dosage: 325(65) MG
     Route: 048
     Dates: start: 20191121
  7. VENOFER [Suspect]
     Active Substance: IRON SUCROSE
     Dosage: 300 MILLIGRAM IN 0.9% NACL 150 ML OVER 60 MINUTES
     Route: 042
     Dates: start: 20191223, end: 20191223

REACTIONS (3)
  - Headache [Recovered/Resolved]
  - Infusion site pain [Recovered/Resolved]
  - Infusion site bruising [Recovered/Resolved]

NARRATIVE: CASE EVENT DATE: 20191223
